FAERS Safety Report 8216172-7 (Version None)
Quarter: 2012Q1

REPORT INFORMATION
  Report Type: 
  Country: None (occurrence: None)
  Receive Date: 20120316
  Receipt Date: 20120308
  Transmission Date: 20120608
  Serious: Yes (Hospitalization)
  Sender: FDA-Public Use
  Company Number: US-GLAXOSMITHKLINE-A0958026A

PATIENT
  Age: 65 Year
  Sex: Male
  Weight: 64.1 kg

DRUGS (7)
  1. TEA [Concomitant]
  2. MEGACE [Concomitant]
     Indication: APPETITE DISORDER
     Dosage: 2TAB PER DAY
     Route: 048
     Dates: start: 20110721
  3. MIRALAX [Concomitant]
     Dosage: 1TSP PER DAY
     Route: 048
     Dates: start: 20111128
  4. XANAX [Concomitant]
     Indication: ANXIETY
     Dosage: .5MG AS REQUIRED
     Route: 048
  5. AMBIEN [Concomitant]
     Indication: SLEEP DISORDER
     Dosage: 5MG AS REQUIRED
     Route: 048
  6. DIOVAN [Concomitant]
     Indication: HYPERTENSION
     Dosage: 160MG PER DAY
     Route: 048
  7. VOTRIENT [Suspect]
     Indication: METASTATIC RENAL CELL CARCINOMA
     Dosage: 800MG PER DAY
     Route: 048
     Dates: start: 20111026, end: 20111205

REACTIONS (6)
  - CHROMATURIA [None]
  - LIVER FUNCTION TEST ABNORMAL [None]
  - HEPATOTOXICITY [None]
  - JAUNDICE [None]
  - MALAISE [None]
  - DYSPNOEA [None]
